FAERS Safety Report 7827257-9 (Version None)
Quarter: 2011Q4

REPORT INFORMATION
  Report Type: 
  Country: None (occurrence: None)
  Receive Date: 20111020
  Receipt Date: 20111015
  Transmission Date: 20120403
  Serious: Yes (Hospitalization)
  Sender: FDA-Public Use
  Company Number: PH-PFIZER INC-2011185563

PATIENT
  Age: 59 Year
  Sex: Female

DRUGS (7)
  1. ATORVASTATIN [Concomitant]
     Dosage: UNK
  2. CELECOXIB [Concomitant]
     Dosage: UNK
  3. LYRICA [Suspect]
     Indication: NEURITIS
     Dosage: UNK
     Dates: start: 20110627, end: 20110801
  4. ACETYLSALICYLIC ACID [Concomitant]
     Dosage: UNK
  5. LYRICA [Suspect]
     Indication: NEURALGIA
  6. AMLODIPINE [Concomitant]
     Dosage: UNK
  7. LOSARTAN POTASSIUM AND HYDROCHLOROTHIAZIDE [Concomitant]
     Dosage: UNK

REACTIONS (2)
  - FEELING DRUNK [None]
  - NEUROPATHY PERIPHERAL [None]
